FAERS Safety Report 9283046 (Version 1)
Quarter: 2013Q2

REPORT INFORMATION
  Report Type: Spontaneous
  Country: US (occurrence: US)
  Receive Date: 20130510
  Receipt Date: 20130510
  Transmission Date: 20140414
  Serious: Yes (Other)
  Sender: FDA-Public Use
  Company Number: US-GLAXOSMITHKLINE-A0975508A

PATIENT
  Sex: Female
  Weight: 60.9 kg

DRUGS (9)
  1. TYKERB [Suspect]
     Indication: PRODUCT USED FOR UNKNOWN INDICATION
     Dosage: 750MG PER DAY
     Route: 048
  2. XELODA [Concomitant]
  3. SERTRALINE [Concomitant]
  4. LIPITOR [Concomitant]
  5. LORAZEPAM [Concomitant]
  6. MULTIVITAMIN [Concomitant]
  7. CALCIUM [Concomitant]
  8. HERCEPTIN [Concomitant]
  9. VITAMIN B6 [Concomitant]

REACTIONS (1)
  - Palmar-plantar erythrodysaesthesia syndrome [Unknown]
